FAERS Safety Report 5384196-3 (Version None)
Quarter: 2007Q3

REPORT INFORMATION
  Report Type: 
  Country: None (occurrence: None)
  Receive Date: 20070711
  Receipt Date: 20070711
  Transmission Date: 20080115
  Serious: Yes (Other)
  Sender: FDA-Public Use
  Company Number: B0467574A

PATIENT
  Age: 59 Year
  Sex: Female

DRUGS (2)
  1. FORTUM [Suspect]
     Indication: PSEUDOMONAS INFECTION
     Dosage: 2G THREE TIMES PER DAY
     Route: 042
     Dates: start: 20070301, end: 20070501
  2. TAMOXIFEN CITRATE [Concomitant]
     Route: 065
     Dates: start: 20060501

REACTIONS (4)
  - BLOOD ALKALINE PHOSPHATASE DECREASED [None]
  - MONOCYTE PERCENTAGE INCREASED [None]
  - NEUTROPENIA [None]
  - WHITE BLOOD CELL COUNT DECREASED [None]
